FAERS Safety Report 20747723 (Version 2)
Quarter: 2023Q1

REPORT INFORMATION
  Report Type: Spontaneous
  Country: US (occurrence: US)
  Receive Date: 20220425
  Receipt Date: 20230123
  Transmission Date: 20230417
  Serious: No
  Sender: FDA-Public Use
  Company Number: US-SANOFI-01069315

PATIENT
  Age: 74 Year
  Sex: Male

DRUGS (2)
  1. LANTUS SOLOSTAR [Suspect]
     Active Substance: INSULIN GLARGINE
     Indication: Type 2 diabetes mellitus
     Dosage: UNK UNK, BID, 40 UNITS, 10 UNITS DRUG INTERVAL DOSAGE : IN THE MORNING AND AT BEDTIME
  2. LANTUS SOLOSTAR [Suspect]
     Active Substance: INSULIN GLARGINE
     Dosage: UNK UNK, BID, 40 UNITS, 5 UNITS HS DRUG INTERVAL DOSAGE: IN THE MORNING AND AT BEDTIME
     Route: 058

REACTIONS (1)
  - Inappropriate schedule of product administration [Unknown]
